FAERS Safety Report 19957802 (Version 1)
Quarter: 2021Q4

REPORT INFORMATION
  Report Type: Spontaneous
  Country: KR (occurrence: KR)
  Receive Date: 20211015
  Receipt Date: 20211015
  Transmission Date: 20220303
  Serious: Yes (Hospitalization, Other)
  Sender: FDA-Public Use
  Company Number: KR-SA-2021SA334084

PATIENT
  Age: 55 Year
  Sex: Male

DRUGS (7)
  1. ISONIAZID [Suspect]
     Active Substance: ISONIAZID
     Indication: Intestinal tuberculosis
     Dosage: 400 MG, QD
  2. ISONIAZID [Suspect]
     Active Substance: ISONIAZID
     Indication: Pulmonary tuberculosis
     Dosage: 400 MG, QD
  3. RIFAMPIN [Suspect]
     Active Substance: RIFAMPIN
     Indication: Intestinal tuberculosis
     Dosage: 600 MG, QD
  4. RIFAMPIN [Suspect]
     Active Substance: RIFAMPIN
     Indication: Pulmonary tuberculosis
     Dosage: 600 MG, QD
  5. ETHAMBUTOL [Suspect]
     Active Substance: ETHAMBUTOL HYDROCHLORIDE
     Indication: Intestinal tuberculosis
     Dosage: 800 MG, QD
  6. ETHAMBUTOL [Suspect]
     Active Substance: ETHAMBUTOL HYDROCHLORIDE
     Indication: Pulmonary tuberculosis
     Dosage: 800 MG, QD
  7. PYRAZINAMIDE [Suspect]
     Active Substance: PYRAZINAMIDE
     Indication: Intestinal tuberculosis
     Dosage: 1500 MG, QD

REACTIONS (8)
  - Small intestinal obstruction [Recovered/Resolved]
  - Peritonitis [Recovered/Resolved]
  - Abdominal pain lower [Recovered/Resolved]
  - Constipation [Recovered/Resolved]
  - Abdominal rebound tenderness [Recovered/Resolved]
  - Ascites [Recovered/Resolved]
  - Perforated ulcer [Recovered/Resolved]
  - Rash [Unknown]
